FAERS Safety Report 19273804 (Version 1)
Quarter: 2021Q2

REPORT INFORMATION
  Report Type: Spontaneous
  Country: US (occurrence: US)
  Receive Date: 20210519
  Receipt Date: 20210519
  Transmission Date: 20210717
  Serious: No
  Sender: FDA-Public Use
  Company Number: US-TEVA-2021-US-1909068

PATIENT
  Age: 60 Year
  Sex: Female

DRUGS (2)
  1. PIMECROLIMUS. [Suspect]
     Active Substance: PIMECROLIMUS
     Indication: DERMATITIS ATOPIC
     Dosage: 100 GRAM
     Route: 065
     Dates: start: 202104
  2. PIMECROLIMUS. [Suspect]
     Active Substance: PIMECROLIMUS
     Indication: ALOPECIA

REACTIONS (2)
  - Therapy non-responder [Unknown]
  - Pruritus [Unknown]

NARRATIVE: CASE EVENT DATE: 202104
